FAERS Safety Report 8591987-4 (Version None)
Quarter: 2012Q3

REPORT INFORMATION
  Report Type: 
  Country: None (occurrence: None)
  Receive Date: 20120814
  Receipt Date: 20120807
  Transmission Date: 20120928
  Serious: Yes (Hospitalization, Other)
  Sender: FDA-Public Use
  Company Number: JP-VERTEX PHARMACEUTICALS INC.-AE-2012-009742

PATIENT
  Age: 60 Year
  Sex: Male

DRUGS (15)
  1. PEGINTERFERON ALFA-2B [Concomitant]
     Route: 058
     Dates: start: 20120621, end: 20120628
  2. ROHYPNOL [Concomitant]
     Route: 048
  3. URSO 250 [Concomitant]
     Route: 048
  4. CANDESARTAN CILEXETIL [Concomitant]
     Route: 048
  5. CARVEDILOL [Concomitant]
     Route: 048
  6. TOWARAT-CR [Concomitant]
     Route: 048
  7. ALLOPURINOL [Concomitant]
     Route: 048
  8. LOPERAMIDE HYDROCHLORIDE [Concomitant]
     Route: 048
  9. TANNALBIN [Concomitant]
     Route: 048
  10. BIO-THREE [Concomitant]
     Route: 048
  11. REBETOL [Concomitant]
     Route: 048
     Dates: start: 20120621, end: 20120630
  12. ADALAT CC [Concomitant]
     Route: 048
  13. TELAVIC [Suspect]
     Indication: HEPATITIS C
     Route: 048
     Dates: start: 20120621, end: 20120625
  14. CARVEDILOL [Concomitant]
     Route: 048
  15. ZOLPIDEM [Concomitant]
     Route: 048

REACTIONS (1)
  - RENAL FAILURE ACUTE [None]
